FAERS Safety Report 10935857 (Version 1)
Quarter: 2015Q1

REPORT INFORMATION
  Report Type: Spontaneous
  Country: US (occurrence: US)
  Receive Date: 20150320
  Receipt Date: 20150320
  Transmission Date: 20150721
  Serious: Yes (Hospitalization)
  Sender: FDA-Public Use
  Company Number: US-TEVA-548783USA

PATIENT
  Age: 67 Year
  Sex: Male

DRUGS (5)
  1. ARIPIPRAZOLE. [Concomitant]
     Active Substance: ARIPIPRAZOLE
     Indication: SEXUALLY INAPPROPRIATE BEHAVIOUR
     Route: 065
  2. MEDROXYPROGESTERONE [Suspect]
     Active Substance: MEDROXYPROGESTERONE
     Indication: SEXUALLY INAPPROPRIATE BEHAVIOUR
     Route: 030
  3. VALPROATE SEMISODIUM [Concomitant]
     Active Substance: DIVALPROEX SODIUM
     Indication: SEXUALLY INAPPROPRIATE BEHAVIOUR
     Dosage: AT NIGHT
     Route: 065
  4. MEDROXYPROGESTERONE [Suspect]
     Active Substance: MEDROXYPROGESTERONE
     Indication: SEXUALLY INAPPROPRIATE BEHAVIOUR
     Route: 030
  5. RISPERIDONE. [Suspect]
     Active Substance: RISPERIDONE
     Indication: SEXUALLY INAPPROPRIATE BEHAVIOUR
     Route: 065

REACTIONS (3)
  - Extrapyramidal disorder [Unknown]
  - Depressive symptom [Recovered/Resolved]
  - Drug ineffective [Unknown]
